FAERS Safety Report 6589157-4 (Version None)
Quarter: 2010Q1

REPORT INFORMATION
  Report Type: 
  Country: None (occurrence: None)
  Receive Date: 20100212
  Receipt Date: 20100126
  Transmission Date: 20100710
  Serious: Yes (Hospitalization)
  Sender: FDA-Public Use
  Company Number: 2010BI001929

PATIENT
  Age: 59 Year
  Sex: Female

DRUGS (6)
  1. ZEVALIN [Suspect]
     Indication: NON-HODGKIN'S LYMPHOMA
     Dosage: 900 MBO; 1X; IV
     Route: 042
     Dates: start: 20080313, end: 20080313
  2. CARMUSTINE [Concomitant]
  3. CYTOSINE [Concomitant]
  4. ARABINOSIDE [Concomitant]
  5. ETOPOSIDE [Concomitant]
  6. MELPHALAN [Concomitant]

REACTIONS (5)
  - ANAEMIA [None]
  - FEBRILE NEUTROPENIA [None]
  - GASTROINTESTINAL INFECTION [None]
  - STOMATITIS [None]
  - THROMBOCYTOPENIA [None]
